FAERS Safety Report 10334410 (Version 1)
Quarter: 2014Q3

REPORT INFORMATION
  Report Type: Spontaneous
  Country: US (occurrence: None)
  Receive Date: 20140721
  Receipt Date: 20140721
  Transmission Date: 20150326
  Serious: No
  Sender: FDA-Public Use
  Company Number: None

PATIENT
  Age: 44 Year
  Sex: Male
  Weight: 84.37 kg

DRUGS (2)
  1. HYDROCODON-ACETAMINOPHN 10-325 GENERIC FOR NORCO QUALITES [Suspect]
     Active Substance: ACETAMINOPHEN\HYDROCODONE BITARTRATE
     Indication: INTERVERTEBRAL DISC DEGENERATION
     Dosage: 1 PILL  AS NEEDED  TAKEN BY MOUTH?DATES OF USE: INDEFINITELY
     Route: 048
  2. HYDROCODON-ACETAMINOPHN 10-325 GENERIC FOR NORCO QUALITES [Suspect]
     Active Substance: ACETAMINOPHEN\HYDROCODONE BITARTRATE
     Indication: SPINAL COLUMN STENOSIS
     Dosage: 1 PILL  AS NEEDED  TAKEN BY MOUTH?DATES OF USE: INDEFINITELY
     Route: 048

REACTIONS (3)
  - Product quality issue [None]
  - Product substitution issue [None]
  - Drug ineffective [None]

NARRATIVE: CASE EVENT DATE: 20140709
